FAERS Safety Report 4484811-2 (Version None)
Quarter: 2004Q4

REPORT INFORMATION
  Report Type: 
  Country: None (occurrence: None)
  Receive Date: 20041025
  Receipt Date: 20041019
  Transmission Date: 20050328
  Serious: Yes (Life-Threatening)
  Sender: FDA-Public Use
  Company Number: GB-MERCK-0410GBR00213

PATIENT
  Age: 65 Year
  Sex: Male

DRUGS (19)
  1. VIOXX [Suspect]
     Indication: ARTHRITIS
     Route: 048
     Dates: start: 20031106, end: 20041001
  2. GABAPENTIN [Concomitant]
     Route: 065
  3. IPRATROPIUM BROMIDE [Concomitant]
     Route: 055
  4. IPRATROPIUM BROMIDE [Concomitant]
     Route: 055
  5. ALBUTEROL [Concomitant]
     Route: 055
  6. ALBUTEROL [Concomitant]
     Route: 055
  7. SALMETEROL [Concomitant]
     Route: 055
  8. BECLOMETHASONE DIPROPIONATE [Concomitant]
     Route: 055
  9. CLOPIDOGREL BISULFATE [Concomitant]
     Route: 065
  10. NICORANDIL [Concomitant]
     Route: 065
  11. ISOSORBIDE MONONITRATE [Concomitant]
     Route: 065
  12. NITROGLYCERIN [Concomitant]
     Route: 065
  13. PERINDOPRIL [Concomitant]
     Route: 065
  14. SIMVASTATIN [Concomitant]
     Route: 065
  15. FUROSEMIDE [Concomitant]
     Route: 065
  16. ACETAMINOPHEN [Concomitant]
     Route: 065
  17. OXYGEN [Concomitant]
     Route: 065
  18. VALDECOXIB [Concomitant]
     Route: 065
  19. LANSOPRAZOLE [Concomitant]
     Route: 065

REACTIONS (1)
  - TRANSIENT ISCHAEMIC ATTACK [None]
